FAERS Safety Report 13644738 (Version 1)
Quarter: 2017Q2

REPORT INFORMATION
  Report Type: Spontaneous
  Country: US (occurrence: US)
  Receive Date: 20170612
  Receipt Date: 20170612
  Transmission Date: 20170830
  Serious: No
  Sender: FDA-Public Use
  Company Number: US-ROCHE-1371858

PATIENT
  Sex: Female

DRUGS (2)
  1. XELODA [Suspect]
     Active Substance: CAPECITABINE
     Route: 048
  2. XELODA [Suspect]
     Active Substance: CAPECITABINE
     Indication: BREAST CANCER METASTATIC
     Dosage: 2 WEEKS ON, 1 WEEK OFF
     Route: 048

REACTIONS (3)
  - Disease progression [Not Recovered/Not Resolved]
  - Dyspnoea [Unknown]
  - Nausea [Not Recovered/Not Resolved]
